FAERS Safety Report 17880570 (Version 1)
Quarter: 2020Q2

REPORT INFORMATION
  Report Type: Spontaneous
  Country: US (occurrence: US)
  Receive Date: 20200610
  Receipt Date: 20200610
  Transmission Date: 20200714
  Serious: Yes (Other)
  Sender: FDA-Public Use
  Company Number: None

PATIENT
  Age: 60 Year
  Sex: Female
  Weight: 65.25 kg

DRUGS (6)
  1. OMPERAZOLE [Concomitant]
     Active Substance: OMEPRAZOLE
  2. LEVOTHYROXINE. [Concomitant]
     Active Substance: LEVOTHYROXINE
  3. CLONAZEPAM. [Concomitant]
     Active Substance: CLONAZEPAM
  4. B12 INJECTIONS [Concomitant]
  5. CLONAZEPAM. [Suspect]
     Active Substance: CLONAZEPAM
     Indication: ANXIETY
     Route: 048
  6. PAXIL CR [Concomitant]
     Active Substance: PAROXETINE HYDROCHLORIDE

REACTIONS (3)
  - Drug screen negative [None]
  - Product quality issue [None]
  - Thinking abnormal [None]

NARRATIVE: CASE EVENT DATE: 20200311
